FAERS Safety Report 6291437-7 (Version None)
Quarter: 2009Q3

REPORT INFORMATION
  Report Type: 
  Country: None (occurrence: None)
  Receive Date: 20090730
  Receipt Date: 20090723
  Transmission Date: 20100115
  Serious: Yes (Death, Hospitalization)
  Sender: FDA-Public Use
  Company Number: JP-AVENTIS-200912067JP

PATIENT
  Age: 76 Year
  Sex: Female

DRUGS (2)
  1. AMARYL [Suspect]
     Indication: TYPE 2 DIABETES MELLITUS
     Dosage: DOSE: 1 TABLET
     Route: 048
     Dates: start: 20080910
  2. ORAL BLOOD GLUCOSE LOWERING DRUGS [Suspect]
     Indication: TYPE 2 DIABETES MELLITUS
     Dosage: DOSE: 1 TABLET
     Route: 048
     Dates: start: 20081204

REACTIONS (2)
  - SCIATICA [None]
  - SUDDEN DEATH [None]
